FAERS Safety Report 24345419 (Version 1)
Quarter: 2024Q3

REPORT INFORMATION
  Report Type: Spontaneous
  Country: ML (occurrence: ML)
  Receive Date: 20240920
  Receipt Date: 20240920
  Transmission Date: 20241016
  Serious: Yes (Other)
  Sender: ORGANON
  Company Number: ML-ORGANON-O2409MLI001539

PATIENT
  Age: 22 Year
  Sex: Female

DRUGS (1)
  1. MOMETASONE FUROATE [Suspect]
     Active Substance: MOMETASONE FUROATE
     Indication: Nasal polyps
     Dosage: UNK
     Route: 045

REACTIONS (1)
  - Chorioretinitis [Recovering/Resolving]
